FAERS Safety Report 6919710-7 (Version None)
Quarter: 2010Q3

REPORT INFORMATION
  Report Type: 
  Country: None (occurrence: None)
  Receive Date: 20100811
  Receipt Date: 20100527
  Transmission Date: 20110219
  Serious: No
  Sender: FDA-Public Use
  Company Number: US-BRISTOL-MYERS SQUIBB COMPANY-15111248

PATIENT
  Age: 80 Year
  Sex: Female

DRUGS (1)
  1. IXEMPRA KIT [Suspect]
     Indication: BREAST CANCER
     Dosage: BATCH:9B018E EXPDATE:FEB11:15MG STRENGTH:40MG/M2
     Route: 042
     Dates: start: 20100216

REACTIONS (2)
  - DRUG ADMINISTRATION ERROR [None]
  - NO ADVERSE EVENT [None]
